FAERS Safety Report 23328013 (Version 1)
Quarter: 2023Q4

REPORT INFORMATION
  Report Type: Spontaneous
  Country: FR (occurrence: FR)
  Receive Date: 20231221
  Receipt Date: 20231221
  Transmission Date: 20240109
  Serious: Yes (Life-Threatening)
  Sender: FDA-Public Use
  Company Number: FR-AMERICAN REGENT INC-2023003022

PATIENT
  Age: 35 Year
  Sex: Female

DRUGS (3)
  1. FERINJECT [Suspect]
     Active Substance: FERRIC CARBOXYMALTOSE
     Indication: Iron deficiency anaemia
     Dosage: 1 INJECTION (50 MG)
     Dates: start: 20231120, end: 20231120
  2. ASCORBIC ACID [Suspect]
     Active Substance: ASCORBIC ACID
     Indication: Iron deficiency anaemia
     Dosage: UNK
     Route: 048
     Dates: start: 20231009
  3. FERROUS SULFATE [Suspect]
     Active Substance: FERROUS SULFATE
     Indication: Iron deficiency anaemia
     Dosage: UNK
     Route: 048
     Dates: start: 20231009

REACTIONS (1)
  - Agranulocytosis [Recovering/Resolving]

NARRATIVE: CASE EVENT DATE: 20231129
